FAERS Safety Report 4994777-4 (Version None)
Quarter: 2006Q1

REPORT INFORMATION
  Report Type: 
  Country: None (occurrence: None)
  Receive Date: 20060313
  Receipt Date: 20050523
  Transmission Date: 20060701
  Serious: Yes (Other)
  Sender: FDA-Public Use
  Company Number: PHEH2005US05881

PATIENT
  Age: 44 Year
  Sex: Female

DRUGS (1)
  1. TRILEPTAL [Suspect]
     Indication: SPINAL CORD INFECTION
     Dosage: 1.5 TABS,BID,ORAL
     Route: 048
     Dates: start: 20010101

REACTIONS (1)
  - HYPOAESTHESIA [None]
